FAERS Safety Report 20188851 (Version 2)
Quarter: 2022Q1

REPORT INFORMATION
  Report Type: Spontaneous
  Country: RU (occurrence: None)
  Receive Date: 20211215
  Receipt Date: 20220113
  Transmission Date: 20220423
  Serious: Yes (Other)
  Sender: FDA-Public Use
  Company Number: 2021A866740

PATIENT
  Sex: Female

DRUGS (1)
  1. SYMBICORT [Suspect]
     Active Substance: BUDESONIDE\FORMOTEROL FUMARATE DIHYDRATE
     Indication: Asthma
     Dosage: 160/4.5 MCG/INHALATION UNKNOWN
     Route: 055
     Dates: start: 202105

REACTIONS (3)
  - COVID-19 [Unknown]
  - Asthma [Unknown]
  - Therapeutic response unexpected [Unknown]
